FAERS Safety Report 6787479-5 (Version None)
Quarter: 2010Q2

REPORT INFORMATION
  Report Type: 
  Country: None (occurrence: None)
  Receive Date: 20100623
  Receipt Date: 20071224
  Transmission Date: 20101027
  Serious: No
  Sender: FDA-Public Use
  Company Number: US-PFIZER INC-2005053733

PATIENT
  Sex: Female
  Weight: 54.43 kg

DRUGS (2)
  1. DOSTINEX [Suspect]
     Indication: BLOOD PROLACTIN INCREASED
     Dosage: WEEKLY
     Route: 048
     Dates: start: 20050101
  2. PROMETHAZINE [Interacting]
     Indication: VOMITING
     Dates: start: 20071201

REACTIONS (5)
  - DRUG INTERACTION [None]
  - FOOD POISONING [None]
  - LIP SWELLING [None]
  - OEDEMA PERIPHERAL [None]
  - VOMITING [None]
